FAERS Safety Report 14197776 (Version 2)
Quarter: 2018Q1

REPORT INFORMATION
  Report Type: Spontaneous
  Country: US (occurrence: US)
  Receive Date: 20171117
  Receipt Date: 20180102
  Transmission Date: 20180508
  Serious: Yes (Disabling)
  Sender: FDA-Public Use
  Company Number: US-009507513-1711USA005004

PATIENT
  Age: 59 Year
  Sex: Female

DRUGS (3)
  1. KEYTRUDA [Suspect]
     Active Substance: PEMBROLIZUMAB
     Indication: MALIGNANT MELANOMA
     Dosage: UNK, Q5W
     Route: 042
     Dates: start: 201602
  2. BENADRYL [Concomitant]
     Active Substance: DIPHENHYDRAMINE HYDROCHLORIDE
     Dosage: UNK
  3. TYLENOL [Concomitant]
     Active Substance: ACETAMINOPHEN
     Dosage: UNK

REACTIONS (5)
  - Neoplasm [Unknown]
  - Inappropriate schedule of drug administration [Unknown]
  - Eye irritation [Unknown]
  - Skin depigmentation [Unknown]
  - Dry eye [Unknown]

NARRATIVE: CASE EVENT DATE: 201602
